FAERS Safety Report 7814370-5 (Version None)
Quarter: 2011Q4

REPORT INFORMATION
  Report Type: 
  Country: None (occurrence: None)
  Receive Date: 20111014
  Receipt Date: 20110930
  Transmission Date: 20120403
  Serious: Yes (Hospitalization, Other)
  Sender: FDA-Public Use
  Company Number: PHHY2011BR86890

PATIENT
  Sex: Female

DRUGS (3)
  1. EXFORGE [Suspect]
     Dosage: 1 DF, DAILY (320 MG VALSARTAN AND 10 MG AMLODIPINE BESILATE)
     Route: 048
  2. EXFORGE [Suspect]
     Indication: HYPERTENSION
     Dosage: 1 DF, DAILY (320 MG VALSARTAN AND 5 MG AMLODIPINE BESILATE)
     Route: 048
  3. EXFORGE [Suspect]
     Dosage: 1 DF, (320/5 MG, 1 TABLET DAILY IN THE MORNING)

REACTIONS (6)
  - BLOOD PRESSURE INCREASED [None]
  - INFARCTION [None]
  - BLOOD PRESSURE FLUCTUATION [None]
  - ABDOMINAL DISTENSION [None]
  - FLUID RETENTION [None]
  - SWELLING [None]
